FAERS Safety Report 6852887-0 (Version None)
Quarter: 2010Q3

REPORT INFORMATION
  Report Type: 
  Country: None (occurrence: None)
  Receive Date: 20100717
  Receipt Date: 20071126
  Transmission Date: 20110219
  Serious: No
  Sender: FDA-Public Use
  Company Number: US-PFIZER INC-2007101532

PATIENT
  Sex: Male
  Weight: 93 kg

DRUGS (2)
  1. CHANTIX [Suspect]
     Indication: SMOKING CESSATION THERAPY
     Route: 048
     Dates: start: 20071109
  2. VITAMINS [Concomitant]
     Route: 048

REACTIONS (3)
  - ABNORMAL DREAMS [None]
  - INITIAL INSOMNIA [None]
  - POOR QUALITY SLEEP [None]
